FAERS Safety Report 15880768 (Version 1)
Quarter: 2019Q1

REPORT INFORMATION
  Report Type: Spontaneous
  Country: US (occurrence: US)
  Receive Date: 20190105
  Receipt Date: 20190105
  Transmission Date: 20190417
  Serious: Yes (Life-Threatening, Hospitalization, Disabling)
  Sender: FDA-Public Use
  Company Number: None

PATIENT
  Age: 58 Year
  Sex: Male
  Weight: 96.75 kg

DRUGS (8)
  1. CYCLOSPORINE. [Concomitant]
     Active Substance: CYCLOSPORINE
  2. PROMACTA [Concomitant]
     Active Substance: ELTROMBOPAG OLAMINE
  3. HUMIRA [Suspect]
     Active Substance: ADALIMUMAB
     Indication: ANKYLOSING SPONDYLITIS
     Dosage: ?          QUANTITY:12 INJECTION(S);OTHER FREQUENCY:ONCE A WEEK;?
     Route: 058
     Dates: start: 20180412, end: 20180613
  4. SIMPONI [Suspect]
     Active Substance: GOLIMUMAB
  5. LISINOPRIL. [Concomitant]
     Active Substance: LISINOPRIL
  6. ACYCLOVIR. [Concomitant]
     Active Substance: ACYCLOVIR
  7. PEPCID COMPLETE [Concomitant]
     Active Substance: CALCIUM CARBONATE\FAMOTIDINE\MAGNESIUM HYDROXIDE
  8. LEVAQUIN [Suspect]
     Active Substance: LEVOFLOXACIN

REACTIONS (4)
  - Tendon rupture [None]
  - Drug ineffective [None]
  - Aplastic anaemia [None]
  - Impaired work ability [None]

NARRATIVE: CASE EVENT DATE: 20180728
